FAERS Safety Report 14435142 (Version 3)
Quarter: 2018Q1

REPORT INFORMATION
  Report Type: Report from Study
  Country: None (occurrence: US)
  Receive Date: 20180125
  Receipt Date: 20180220
  Transmission Date: 20180509
  Serious: Yes (Other)
  Sender: FDA-Public Use
  Company Number: US-ABBVIE-17K-163-2202234-00

PATIENT
  Sex: Female

DRUGS (2)
  1. HUMIRA [Suspect]
     Active Substance: ADALIMUMAB
     Indication: PSORIATIC ARTHROPATHY
  2. HUMIRA [Suspect]
     Active Substance: ADALIMUMAB
     Indication: PSORIASIS
     Route: 058
     Dates: end: 20171228

REACTIONS (9)
  - Pain [Not Recovered/Not Resolved]
  - Stress [Unknown]
  - Sensitivity to weather change [Unknown]
  - Psoriasis [Not Recovered/Not Resolved]
  - Precancerous skin lesion [Recovering/Resolving]
  - Cardiac disorder [Unknown]
  - Depression [Not Recovered/Not Resolved]
  - Uterine cancer [Not Recovered/Not Resolved]
  - Thyroid cancer [Not Recovered/Not Resolved]

NARRATIVE: CASE EVENT DATE: 2017
